FAERS Safety Report 18575199 (Version 3)
Quarter: 2020Q4

REPORT INFORMATION
  Report Type: Spontaneous
  Country: US (occurrence: US)
  Receive Date: 20201203
  Receipt Date: 20201214
  Transmission Date: 20210114
  Serious: Yes (Other)
  Sender: FDA-Public Use
  Company Number: US-PFIZER INC-2020475557

PATIENT
  Sex: Female

DRUGS (1)
  1. XELJANZ [Suspect]
     Active Substance: TOFACITINIB CITRATE
     Indication: RHEUMATOID ARTHRITIS
     Dosage: UNK

REACTIONS (9)
  - Loss of consciousness [Unknown]
  - Concussion [Unknown]
  - Hypotension [Unknown]
  - Dysgraphia [Unknown]
  - Aphasia [Unknown]
  - Head injury [Unknown]
  - Amnesia [Unknown]
  - Fall [Unknown]
  - Confusional state [Unknown]
